FAERS Safety Report 16993409 (Version 1)
Quarter: 2019Q4

REPORT INFORMATION
  Report Type: Spontaneous
  Country: CN (occurrence: CN)
  Receive Date: 20191105
  Receipt Date: 20191105
  Transmission Date: 20200122
  Serious: Yes (Disabling, Other)
  Sender: FDA-Public Use
  Company Number: CN-PFIZER INC-2019472321

PATIENT
  Age: 38 Year
  Sex: Female
  Weight: 59 kg

DRUGS (2)
  1. SOLU-MEDROL [Suspect]
     Active Substance: METHYLPREDNISOLONE SODIUM SUCCINATE
     Indication: PLATELET DISORDER
     Dosage: 40 MG, 1X/DAY
     Route: 041
     Dates: start: 20191016
  2. SODIUM CHLORIDE. [Concomitant]
     Active Substance: SODIUM CHLORIDE
     Indication: VEHICLE SOLUTION USE
     Dosage: 250 ML, 1X/DAY
     Route: 041
     Dates: start: 20191016, end: 20191021

REACTIONS (4)
  - Feeling hot [Recovering/Resolving]
  - Pharyngeal disorder [Recovering/Resolving]
  - Face oedema [Recovering/Resolving]
  - Hepatic function abnormal [Recovering/Resolving]

NARRATIVE: CASE EVENT DATE: 20191019
